FAERS Safety Report 7904900-7 (Version None)
Quarter: 2011Q4

REPORT INFORMATION
  Report Type: 
  Country: None (occurrence: None)
  Receive Date: 20111109
  Receipt Date: 20111101
  Transmission Date: 20120403
  Serious: Yes (Other)
  Sender: FDA-Public Use
  Company Number: PHEH2011US008599

PATIENT
  Sex: Male

DRUGS (4)
  1. FANAPT [Suspect]
     Dosage: 6 MG, BID
     Route: 048
     Dates: start: 20100512, end: 20111003
  2. TEGRETOL [Concomitant]
     Dosage: 600 MG, QHS
  3. SEROQUEL [Concomitant]
     Dosage: 400 MG, BID
  4. ZOLOFT [Concomitant]
     Dosage: 2 DF, QHS

REACTIONS (2)
  - BREAST DISCHARGE [None]
  - GYNAECOMASTIA [None]
